FAERS Safety Report 24959617 (Version 1)
Quarter: 2025Q1

REPORT INFORMATION
  Report Type: Spontaneous
  Country: RU (occurrence: RU)
  Receive Date: 20250212
  Receipt Date: 20250212
  Transmission Date: 20250409
  Serious: Yes (Other)
  Sender: ASTELLAS
  Company Number: RU-ASTELLAS-2025-AER-006916

PATIENT
  Sex: Male

DRUGS (6)
  1. TACROLIMUS [Suspect]
     Active Substance: TACROLIMUS
     Indication: Prophylaxis against graft versus host disease
     Route: 065
     Dates: start: 20231007, end: 2024
  2. TACROLIMUS [Suspect]
     Active Substance: TACROLIMUS
     Route: 065
     Dates: start: 2024
  3. CYCLOPHOSPHAMIDE [Concomitant]
     Active Substance: CYCLOPHOSPHAMIDE
     Indication: Allogenic stem cell transplantation
     Route: 065
     Dates: start: 20230930, end: 20231005
  4. CYCLOPHOSPHAMIDE [Concomitant]
     Active Substance: CYCLOPHOSPHAMIDE
     Indication: Prophylaxis against graft versus host disease
     Dosage: (50 MG/KG/DAY) ON DAY +3, +4 (PTCY)
     Route: 065
     Dates: start: 20231005, end: 20231006
  5. SIROLIMUS [Concomitant]
     Active Substance: SIROLIMUS
     Indication: Prophylaxis against graft versus host disease
     Route: 048
     Dates: start: 20230929, end: 2024
  6. SIROLIMUS [Concomitant]
     Active Substance: SIROLIMUS
     Route: 048
     Dates: start: 2024

REACTIONS (9)
  - Gastrointestinal inflammation [Unknown]
  - Pharyngeal inflammation [Unknown]
  - Acinetobacter infection [Unknown]
  - Device related infection [Unknown]
  - Epstein-Barr virus infection reactivation [Unknown]
  - Cytomegalovirus infection reactivation [Unknown]
  - Herpes simplex reactivation [Unknown]
  - Soft tissue infection [Unknown]
  - Off label use [Unknown]

NARRATIVE: CASE EVENT DATE: 20231001
